FAERS Safety Report 5596489-5 (Version None)
Quarter: 2008Q1

REPORT INFORMATION
  Report Type: 
  Country: None (occurrence: None)
  Receive Date: 20080118
  Receipt Date: 20080107
  Transmission Date: 20080703
  Serious: Yes (Other)
  Sender: FDA-Public Use
  Company Number: US-PFIZER INC-2007074328

PATIENT
  Sex: Male
  Weight: 77.1 kg

DRUGS (3)
  1. CHANTIX [Suspect]
     Indication: SMOKING CESSATION THERAPY
     Route: 048
     Dates: start: 20070828, end: 20070901
  2. CELEXA [Concomitant]
     Indication: BIPOLAR DISORDER
  3. TRAZODONE HCL [Concomitant]
     Indication: BIPOLAR DISORDER

REACTIONS (10)
  - AGITATION [None]
  - EUPHORIC MOOD [None]
  - FOOD CRAVING [None]
  - ILL-DEFINED DISORDER [None]
  - IMPULSIVE BEHAVIOUR [None]
  - INSOMNIA [None]
  - LOGORRHOEA [None]
  - MANIA [None]
  - NAUSEA [None]
  - OBSESSIVE-COMPULSIVE DISORDER [None]
